FAERS Safety Report 7666213-0 (Version None)
Quarter: 2011Q3

REPORT INFORMATION
  Report Type: 
  Country: None (occurrence: None)
  Receive Date: 20110806
  Receipt Date: 20110421
  Transmission Date: 20111222
  Serious: No
  Sender: FDA-Public Use
  Company Number: US-ABBOTT-11P-163-0721106-00

PATIENT
  Sex: Female
  Weight: 71.732 kg

DRUGS (5)
  1. ASPIRIN [Concomitant]
     Indication: PROPHYLAXIS
  2. ASPIRIN [Concomitant]
     Indication: FLUSHING
  3. METFORMIN HCL [Concomitant]
     Indication: BLOOD GLUCOSE ABNORMAL
  4. SIMVASTATIN [Concomitant]
     Indication: BLOOD CHOLESTEROL
  5. NIASPAN [Suspect]
     Indication: BLOOD CHOLESTEROL
     Dates: start: 20110420, end: 20110420

REACTIONS (2)
  - CHILLS [None]
  - FLUSHING [None]
